FAERS Safety Report 10341197 (Version 5)
Quarter: 2016Q1

REPORT INFORMATION
  Report Type: Report from Study
  Country: BR (occurrence: BR)
  Receive Date: 20140724
  Receipt Date: 20160310
  Transmission Date: 20160525
  Serious: Yes (Other)
  Sender: FDA-Public Use
  Company Number: BR-ROCHE-1439024

PATIENT
  Sex: Female
  Weight: 67 kg

DRUGS (16)
  1. ARCOXIA [Concomitant]
     Active Substance: ETORICOXIB
     Route: 065
  2. METHOTREXATE [Concomitant]
     Active Substance: METHOTREXATE
     Route: 065
  3. FOLIC ACID. [Concomitant]
     Active Substance: FOLIC ACID
     Dosage: DAILY
     Route: 065
  4. BACTRIM [Suspect]
     Active Substance: SULFAMETHOXAZOLE\TRIMETHOPRIM
     Indication: PRODUCT USED FOR UNKNOWN INDICATION
     Dosage: DOSE :800
     Route: 065
  5. DANZEN [Suspect]
     Active Substance: SERRAPEPTASE
     Indication: PRODUCT USED FOR UNKNOWN INDICATION
     Route: 065
  6. METHOTREXATE [Concomitant]
     Active Substance: METHOTREXATE
     Route: 065
     Dates: start: 200402
  7. ACTEMRA [Suspect]
     Active Substance: TOCILIZUMAB
     Indication: RHEUMATOID ARTHRITIS
     Dosage: MOST RECENT INFUSION IN JUL 2014?544 MG AND 560 MG PER INFUSION WERE RECEIVED, MOST RECENT INFUSION
     Route: 042
     Dates: start: 20131101, end: 201406
  8. METHOTREXATE [Concomitant]
     Active Substance: METHOTREXATE
     Route: 065
  9. ACTEMRA [Suspect]
     Active Substance: TOCILIZUMAB
     Route: 042
     Dates: start: 201407, end: 201501
  10. METHOTREXATE [Concomitant]
     Active Substance: METHOTREXATE
     Indication: RHEUMATOID ARTHRITIS
     Route: 065
  11. OSTEONUTRI [Concomitant]
     Indication: OSTEOPENIA
     Route: 065
  12. ACTONEL [Concomitant]
     Active Substance: RISEDRONATE SODIUM
     Indication: OSTEOPENIA
  13. ACTEMRA [Suspect]
     Active Substance: TOCILIZUMAB
     Route: 042
     Dates: start: 20141117
  14. OSTEONUTRI [Concomitant]
     Indication: OSTEOPOROSIS
     Dosage: 1 TABLET
     Route: 065
     Dates: start: 2008
  15. ACTONEL [Concomitant]
     Active Substance: RISEDRONATE SODIUM
     Indication: OSTEOPOROSIS
     Dosage: 1 TABLET
     Route: 065
     Dates: start: 2013
  16. DEFLAZACORT [Concomitant]
     Active Substance: DEFLAZACORT
     Route: 065
     Dates: start: 201402

REACTIONS (13)
  - Peripheral swelling [Not Recovered/Not Resolved]
  - Conjunctivitis bacterial [Recovering/Resolving]
  - Ear infection [Unknown]
  - Cataract [Recovered/Resolved]
  - Gait disturbance [Not Recovered/Not Resolved]
  - Food poisoning [Recovering/Resolving]
  - Hypersensitivity [Unknown]
  - Limb immobilisation [Not Recovered/Not Resolved]
  - Arthritis [Not Recovered/Not Resolved]
  - Drug hypersensitivity [Unknown]
  - Influenza [Recovering/Resolving]
  - Anaphylactic shock [Unknown]
  - Arthralgia [Not Recovered/Not Resolved]
